FAERS Safety Report 5339365-5 (Version None)
Quarter: 2007Q2

REPORT INFORMATION
  Report Type: 
  Country: None (occurrence: None)
  Receive Date: 20070322
  Receipt Date: 20061004
  Transmission Date: 20071010
  Serious: Yes (Other)
  Sender: FDA-Public Use
  Company Number: 200613639BCC

PATIENT
  Age: 78 Year
  Sex: Female
  Weight: 73.4827 kg

DRUGS (4)
  1. ALEVE (CAPLET) [Suspect]
     Indication: DRUG USE FOR UNKNOWN INDICATION
     Dosage: 220 MG, QD; ORAL
     Route: 048
     Dates: start: 20060825
  2. ASPIRIN [Suspect]
     Dosage: ONCE,
     Dates: start: 20060801
  3. METFORMIN HCL [Concomitant]
  4. AMARYL [Concomitant]

REACTIONS (1)
  - HAEMATOCHEZIA [None]
